FAERS Safety Report 7427205-X (Version None)
Quarter: 2011Q2

REPORT INFORMATION
  Report Type: 
  Country: None (occurrence: None)
  Receive Date: 20110420
  Receipt Date: 20110324
  Transmission Date: 20111010
  Serious: No
  Sender: FDA-Public Use
  Company Number: US-PFIZER INC-2011077936

PATIENT
  Sex: Female
  Weight: 61.224 kg

DRUGS (7)
  1. HUMIRA [Suspect]
     Indication: CROHN'S DISEASE
     Dosage: 160 MG, UNK
     Route: 065
     Dates: start: 20110125, end: 20110125
  2. HUMIRA [Suspect]
     Indication: PSORIASIS
     Dosage: 40 MG, 1 IN 2 WK
  3. FLUCONAZOLE [Suspect]
     Dosage: UNK
     Dates: start: 20110212, end: 20110215
  4. FOLIC ACID [Concomitant]
     Indication: SUPPLEMENTATION THERAPY
     Dosage: UNK
  5. ERGOCALCIFEROL [Concomitant]
     Indication: SUPPLEMENTATION THERAPY
     Dosage: UNK
  6. RABEPRAZOLE SODIUM [Concomitant]
     Indication: GASTROOESOPHAGEAL REFLUX DISEASE
     Dosage: 20 MG, 1X/DAY
  7. FLUCONAZOLE [Suspect]
     Indication: INFECTION
     Dosage: UNK
     Route: 065
     Dates: start: 20110209, end: 20110210

REACTIONS (4)
  - CHAPPED LIPS [None]
  - OEDEMA [None]
  - LIP HAEMORRHAGE [None]
  - SKIN FISSURES [None]
